FAERS Safety Report 8100680-3 (Version None)
Quarter: 2012Q1

REPORT INFORMATION
  Report Type: 
  Country: None (occurrence: None)
  Receive Date: 20120129
  Receipt Date: 20111206
  Transmission Date: 20120608
  Serious: No
  Sender: FDA-Public Use
  Company Number: US-ABBOTT-11P-163-0715096-00

PATIENT
  Age: 60 Year
  Sex: Female

DRUGS (18)
  1. HUMIRA [Suspect]
  2. MP [Concomitant]
     Indication: CROHN'S DISEASE
     Dosage: 6 DAILY
  3. GLYBURIDE [Concomitant]
     Indication: DIABETES MELLITUS
     Route: 048
  4. HUMIRA [Suspect]
     Indication: CROHN'S DISEASE
     Dosage: LOADING DOSE
     Dates: start: 20110315, end: 20110315
  5. HUMIRA [Suspect]
     Dosage: ONCE
     Dates: start: 20110329, end: 20110329
  6. DILTIAZEM HCL [Concomitant]
     Indication: BLOOD PRESSURE
     Dosage: 240 MG DAILY
     Route: 048
  7. GABAPENTIN [Concomitant]
     Indication: NEUROPATHY PERIPHERAL
     Route: 048
  8. CLONAZEPAM [Concomitant]
     Indication: ANXIETY
  9. PRAVASTATIN [Concomitant]
     Indication: BLOOD CHOLESTEROL INCREASED
     Dosage: DAILY
     Route: 048
  10. VITAMIN TAB [Concomitant]
     Indication: PRODUCT USED FOR UNKNOWN INDICATION
     Dosage: ADULT
     Route: 048
  11. CLONIDINE [Concomitant]
     Indication: BLOOD PRESSURE
     Route: 048
  12. ASPIRIN [Concomitant]
     Indication: PRODUCT USED FOR UNKNOWN INDICATION
     Dosage: DAILY
     Route: 048
  13. PENTASA [Concomitant]
     Indication: CROHN'S DISEASE
  14. CLONAZEPAM [Concomitant]
     Indication: DEPRESSION
     Route: 048
  15. BENAZEPRIL HYDROCHLORIDE [Concomitant]
     Indication: BLOOD PRESSURE
     Dosage: 40 MG DAILY
     Route: 048
  16. METFORMIN HCL [Concomitant]
     Indication: DIABETES MELLITUS
     Route: 048
  17. SERTRALINE HYDROCHLORIDE [Concomitant]
     Indication: DEPRESSION
     Dosage: 100 MG DAILY
     Route: 048
  18. PREDNISONE TAB [Concomitant]
     Indication: CROHN'S DISEASE
     Dosage: TAPER
     Route: 048

REACTIONS (8)
  - FEELING DRUNK [None]
  - FATIGUE [None]
  - HYPOAESTHESIA ORAL [None]
  - CONSTIPATION [None]
  - DISORIENTATION [None]
  - NERVOUSNESS [None]
  - FEELING ABNORMAL [None]
  - INJECTION SITE PAIN [None]
